FAERS Safety Report 7837951 (Version 7)
Quarter: 2014Q3

REPORT INFORMATION
  Report Type: Spontaneous
  Country: US (occurrence: US)
  Receive Date: 20110302
  Receipt Date: 20140926
  Transmission Date: 20150326
  Serious: Yes (Hospitalization, Disabling, Other)
  Sender: FDA-Public Use
  Company Number: US-ASTRAZENECA-2010SE55771

PATIENT
  Age: 64 Year
  Sex: Female
  Weight: 64.4 kg

DRUGS (27)
  1. NEXIUM [Suspect]
     Active Substance: ESOMEPRAZOLE MAGNESIUM
     Indication: OESOPHAGEAL ULCER
     Route: 048
     Dates: end: 20040728
  2. NEXIUM [Suspect]
     Active Substance: ESOMEPRAZOLE MAGNESIUM
     Indication: GASTROOESOPHAGEAL REFLUX DISEASE
     Route: 048
     Dates: start: 20040729
  3. NEXIUM [Suspect]
     Active Substance: ESOMEPRAZOLE MAGNESIUM
     Indication: GASTRIC ULCER
     Route: 048
     Dates: start: 20040729
  4. NEXIUM [Suspect]
     Active Substance: ESOMEPRAZOLE MAGNESIUM
     Indication: GASTRIC ULCER
     Route: 048
  5. TUMS [Concomitant]
     Active Substance: CALCIUM CARBONATE
  6. PEPTO-BISMOL [Concomitant]
     Active Substance: BISMUTH SUBSALICYLATE\CALCIUM CARBONATE
  7. ZETIA [Concomitant]
     Active Substance: EZETIMIBE
     Indication: BLOOD CHOLESTEROL ABNORMAL
     Route: 048
     Dates: start: 20140320
  8. FOLIC ACID. [Concomitant]
     Active Substance: FOLIC ACID
     Indication: CARDIAC DISORDER
     Route: 048
  9. ALBUTEROL. [Concomitant]
     Active Substance: ALBUTEROL
     Indication: ASTHMA
     Dates: start: 2006
  10. METOPROLOL TARTRATE. [Suspect]
     Active Substance: METOPROLOL TARTRATE
     Indication: HEART RATE INCREASED
     Route: 048
     Dates: start: 2013
  11. ASPIRIN. [Suspect]
     Active Substance: ASPIRIN
     Route: 065
  12. SINGULAIR [Concomitant]
     Active Substance: MONTELUKAST SODIUM
  13. BEXTRA [Concomitant]
     Active Substance: VALDECOXIB
  14. VICTOZA [Concomitant]
     Active Substance: LIRAGLUTIDE
     Indication: DIABETES MELLITUS
     Dates: start: 201309
  15. NEXIUM [Suspect]
     Active Substance: ESOMEPRAZOLE MAGNESIUM
     Indication: GASTROOESOPHAGEAL REFLUX DISEASE
     Route: 048
     Dates: end: 20040728
  16. NEXIUM [Suspect]
     Active Substance: ESOMEPRAZOLE MAGNESIUM
     Indication: OESOPHAGEAL ULCER
     Route: 048
     Dates: start: 20040729
  17. NEXIUM [Suspect]
     Active Substance: ESOMEPRAZOLE MAGNESIUM
     Indication: OESOPHAGEAL ULCER
     Route: 048
  18. CRESTOR [Suspect]
     Active Substance: ROSUVASTATIN CALCIUM
     Indication: BLOOD CHOLESTEROL ABNORMAL
     Route: 048
     Dates: start: 2012, end: 2013
  19. METOPROLOL TARTRATE. [Suspect]
     Active Substance: METOPROLOL TARTRATE
     Indication: RAYNAUD^S PHENOMENON
     Route: 048
     Dates: start: 2013
  20. TOPROL XL [Concomitant]
     Active Substance: METOPROLOL SUCCINATE
     Route: 048
  21. UNSPECIFIED ANTIBIOTIC [Suspect]
     Active Substance: UNSPECIFIED INGREDIENT
     Route: 065
  22. VENTOLIN [Concomitant]
     Active Substance: ALBUTEROL SULFATE
     Indication: RESPIRATORY DISORDER
     Dosage: PRN
     Route: 055
     Dates: start: 201303
  23. NEXIUM [Suspect]
     Active Substance: ESOMEPRAZOLE MAGNESIUM
     Indication: GASTRIC ULCER
     Route: 048
     Dates: end: 20040728
  24. NEXIUM [Suspect]
     Active Substance: ESOMEPRAZOLE MAGNESIUM
     Indication: GASTROOESOPHAGEAL REFLUX DISEASE
     Route: 048
  25. ASACOL [Concomitant]
     Active Substance: MESALAMINE
  26. ZETIA [Concomitant]
     Active Substance: EZETIMIBE
     Indication: HEPATIC STEATOSIS
     Route: 048
     Dates: start: 20140320
  27. VICTOZA [Concomitant]
     Active Substance: LIRAGLUTIDE
     Indication: DIABETES MELLITUS
     Dates: start: 20130304, end: 201309

REACTIONS (20)
  - Incisional hernia [Unknown]
  - Drug hypersensitivity [Unknown]
  - Blood glucose increased [Unknown]
  - Adverse event [Unknown]
  - Stomatitis [Unknown]
  - Rash [Unknown]
  - Breast cancer [Unknown]
  - Blindness [Unknown]
  - Stoma site pain [Unknown]
  - Abdominal pain upper [Unknown]
  - Malaise [Unknown]
  - Depressed level of consciousness [Unknown]
  - Diabetes mellitus [Unknown]
  - Flatulence [Unknown]
  - Drug dose omission [Unknown]
  - Gastrooesophageal reflux disease [Unknown]
  - Breast disorder [Unknown]
  - Abdominal hernia [Unknown]
  - Chest discomfort [Unknown]
  - Asthma [Unknown]

NARRATIVE: CASE EVENT DATE: 20040729
